FAERS Safety Report 16791987 (Version 1)
Quarter: 2019Q3

REPORT INFORMATION
  Report Type: Spontaneous
  Country: US (occurrence: US)
  Receive Date: 20190910
  Receipt Date: 20190910
  Transmission Date: 20191005
  Serious: Yes (Death, Hospitalization)
  Sender: FDA-Public Use
  Company Number: US-TEVA-2019-US-1105390

PATIENT
  Age: 32 Year
  Sex: Male

DRUGS (5)
  1. FLECAINIDE [Suspect]
     Active Substance: FLECAINIDE
     Indication: COMPLETED SUICIDE
  2. METOPROLOL SUCCINATE. [Suspect]
     Active Substance: METOPROLOL SUCCINATE
     Indication: INTENTIONAL OVERDOSE
  3. METOPROLOL SUCCINATE. [Suspect]
     Active Substance: METOPROLOL SUCCINATE
     Indication: COMPLETED SUICIDE
     Dosage: UNKNOWN QUANTITY OF 100MG ALONG WITH ALCOHOL
     Route: 048
  4. FLECAINIDE [Suspect]
     Active Substance: FLECAINIDE
     Indication: INTENTIONAL OVERDOSE
     Dosage: 30 TABLETS OF 100MG
     Route: 048
  5. ALCOHOL. [Concomitant]
     Active Substance: ALCOHOL
     Route: 048

REACTIONS (11)
  - Cardiac arrest [Fatal]
  - Electrocardiogram QRS complex prolonged [Unknown]
  - Shock [Fatal]
  - Hypotension [Unknown]
  - Electrocardiogram QT prolonged [Unknown]
  - Ventricular fibrillation [Fatal]
  - Intentional overdose [Fatal]
  - Completed suicide [Fatal]
  - Cardiogenic shock [Fatal]
  - Tachycardia [Unknown]
  - Pulseless electrical activity [Fatal]
